FAERS Safety Report 21304412 (Version 1)
Quarter: 2022Q3

REPORT INFORMATION
  Report Type: Spontaneous
  Country: US (occurrence: None)
  Receive Date: 20220907
  Receipt Date: 20220907
  Transmission Date: 20221026
  Serious: No
  Sender: FDA-Public Use
  Company Number: US-ARIS GLOBAL-202108-1387

PATIENT
  Sex: Male
  Weight: 157.99 kg

DRUGS (8)
  1. OXERVATE [Suspect]
     Active Substance: CENEGERMIN-BKBJ
     Indication: Neurotrophic keratopathy
     Route: 047
     Dates: start: 20210714
  2. ERYTHROMYCIN [Concomitant]
     Active Substance: ERYTHROMYCIN
  3. MURO-128 [Concomitant]
  4. ILEVRO [Concomitant]
     Active Substance: NEPAFENAC
     Dosage: DROPS SUSPENSION
  5. RESTASIS [Concomitant]
     Active Substance: CYCLOSPORINE
     Dosage: DROPERETTE
  6. ZIOPTAN [Concomitant]
     Active Substance: TAFLUPROST
     Dosage: DROPERETTE
  7. DORZOLAMIDE\TIMOLOL [Concomitant]
     Active Substance: DORZOLAMIDE\TIMOLOL
  8. DUREZOL [Concomitant]
     Active Substance: DIFLUPREDNATE

REACTIONS (7)
  - Photophobia [Unknown]
  - Vision blurred [Unknown]
  - Eye pain [Not Recovered/Not Resolved]
  - Eye irritation [Unknown]
  - Vision blurred [Unknown]
  - Eye irritation [Not Recovered/Not Resolved]
  - Headache [Not Recovered/Not Resolved]
